FAERS Safety Report 25875229 (Version 1)
Quarter: 2025Q4

REPORT INFORMATION
  Report Type: Spontaneous
  Country: US (occurrence: US)
  Receive Date: 20251003
  Receipt Date: 20251003
  Transmission Date: 20260117
  Serious: Yes (Other)
  Sender: AMGEN
  Company Number: US-AMGEN-USASP2025192102

PATIENT
  Age: 60 Year
  Sex: Male

DRUGS (3)
  1. PREDNISONE [Suspect]
     Active Substance: PREDNISONE
     Indication: Pulmonary sarcoidosis
     Dosage: 40 MILLIGRAM, QD
     Route: 065
  2. METHYLPREDNISOLONE [Concomitant]
     Active Substance: METHYLPREDNISOLONE
     Indication: Pulmonary sarcoidosis
     Dosage: 8 MILLIGRAM, QD
     Route: 065
  3. METHOTREXATE [Concomitant]
     Active Substance: METHOTREXATE
     Indication: Pulmonary sarcoidosis
     Dosage: 15 MILLIGRAM, QWK
     Route: 065

REACTIONS (6)
  - Pulmonary sarcoidosis [Unknown]
  - Mycobacterium marinum infection [Unknown]
  - Therapeutic product effect decreased [Unknown]
  - Insomnia [Unknown]
  - Tenosynovitis [Unknown]
  - Joint range of motion decreased [Unknown]
